FAERS Safety Report 8369193-8 (Version None)
Quarter: 2012Q2

REPORT INFORMATION
  Report Type: 
  Country: None (occurrence: None)
  Receive Date: 20120518
  Receipt Date: 20120514
  Transmission Date: 20120825
  Serious: Yes (Hospitalization)
  Sender: FDA-Public Use
  Company Number: US-BAYER-2011-019361

PATIENT
  Age: 31 Year
  Sex: Female
  Weight: 178 kg

DRUGS (6)
  1. YAZ [Suspect]
     Indication: MENSTRUAL DISORDER
     Dosage: UNK
     Dates: start: 20090202, end: 20090227
  2. AUGMENTIN XR [Concomitant]
     Dosage: 1 G, UNK
     Dates: start: 20081105
  3. YASMIN [Suspect]
  4. METHADONE HYDROCHLORIDE [Concomitant]
     Dosage: 10 MG, UNK
     Dates: start: 20090210
  5. FLUCONAZOLE [Concomitant]
     Dosage: 150 MG, UNK
     Dates: start: 20081105
  6. NORGESTIMATE AND ETHINYL ESTRADIOL [Concomitant]
     Dosage: UNK
     Dates: start: 20081229

REACTIONS (6)
  - DYSPNOEA [None]
  - NERVOUSNESS [None]
  - PAIN [None]
  - PANIC ATTACK [None]
  - PULMONARY EMBOLISM [None]
  - DEEP VEIN THROMBOSIS [None]
